FAERS Safety Report 7191003-5 (Version None)
Quarter: 2010Q4

REPORT INFORMATION
  Report Type: 
  Country: None (occurrence: None)
  Receive Date: 20101221
  Receipt Date: 20101221
  Transmission Date: 20110411
  Serious: Yes (Hospitalization)
  Sender: FDA-Public Use
  Company Number: None

PATIENT
  Age: 50 Year
  Sex: Female
  Weight: 65.7716 kg

DRUGS (1)
  1. NUCYNTA [Suspect]
     Indication: PROCEDURAL PAIN
     Dosage: 1-2 TABLETS 4-6 HOURS PO
     Route: 048
     Dates: start: 20101215, end: 20101217

REACTIONS (6)
  - ABASIA [None]
  - CRYING [None]
  - DYSGRAPHIA [None]
  - DYSSTASIA [None]
  - IMMOBILE [None]
  - MUSCLE CONTRACTIONS INVOLUNTARY [None]
